FAERS Safety Report 22851267 (Version 3)
Quarter: 2023Q4

REPORT INFORMATION
  Report Type: Spontaneous
  Country: US (occurrence: US)
  Receive Date: 20230822
  Receipt Date: 20231010
  Transmission Date: 20240110
  Serious: No
  Sender: FDA-Public Use
  Company Number: US-PFIZER INC-202300280195

PATIENT
  Age: 71 Year
  Sex: Female
  Weight: 74.84 kg

DRUGS (3)
  1. ESTRING [Suspect]
     Active Substance: ESTRADIOL
     Indication: Menopause
     Dosage: IT LASTS FOR THREE MONTHS
     Route: 067
  2. THYROXINE [Concomitant]
     Active Substance: LEVOTHYROXINE
     Indication: Hypothyroidism
     Dosage: FOR 30 YEARS
  3. LOSARTAN [Concomitant]
     Active Substance: LOSARTAN
     Indication: Cardiac disorder
     Dosage: BEGAN TAKING THAT 6-7 YEARS AGO

REACTIONS (1)
  - Hot flush [Unknown]
